FAERS Safety Report 24027000 (Version 1)
Quarter: 2024Q2

REPORT INFORMATION
  Report Type: Report from Study
  Country: CN (occurrence: CN)
  Receive Date: 20240628
  Receipt Date: 20240628
  Transmission Date: 20240715
  Serious: No
  Sender: FDA-Public Use
  Company Number: CN-ROCHE-3572601

PATIENT
  Age: 53 Year
  Sex: Male

DRUGS (4)
  1. ALECTINIB [Suspect]
     Active Substance: ALECTINIB
     Indication: Non-small cell lung cancer metastatic
     Route: 048
     Dates: start: 20220531
  2. CEFACLOR [Concomitant]
     Active Substance: CEFACLOR
     Indication: Cough
     Route: 048
     Dates: start: 20221228, end: 20230112
  3. EUCALYPTOL LIMONENE PINENE [Concomitant]
     Indication: Cough
     Route: 048
     Dates: start: 20221228, end: 20230108
  4. AMBROXOL HYDROCHLORIDE [Concomitant]
     Active Substance: AMBROXOL HYDROCHLORIDE
     Indication: Productive cough
     Route: 048
     Dates: start: 20221228, end: 20230112

REACTIONS (1)
  - Blood alkaline phosphatase increased [Recovered/Resolved]

NARRATIVE: CASE EVENT DATE: 20230120
